FAERS Safety Report 15977655 (Version 3)
Quarter: 2019Q3

REPORT INFORMATION
  Report Type: Spontaneous
  Country: DE (occurrence: DE)
  Receive Date: 20190218
  Receipt Date: 20190718
  Transmission Date: 20191004
  Serious: Yes (Hospitalization, Other)
  Sender: FDA-Public Use
  Company Number: PHHY2019DE033420

PATIENT
  Age: 75 Year
  Sex: Male
  Weight: 80 kg

DRUGS (1)
  1. TASIGNA [Suspect]
     Active Substance: NILOTINIB
     Indication: PRODUCT USED FOR UNKNOWN INDICATION
     Dosage: 300 MG, Q12H
     Route: 048
     Dates: start: 20160803, end: 201901

REACTIONS (12)
  - Cerebral artery stenosis [Recovered/Resolved with Sequelae]
  - Ischaemia [Unknown]
  - Aphasia [Recovered/Resolved with Sequelae]
  - Haemorrhage [Unknown]
  - Dysarthria [Recovered/Resolved with Sequelae]
  - Dysphagia [Unknown]
  - Blood cholesterol increased [Unknown]
  - Cerebral infarction [Recovered/Resolved with Sequelae]
  - Paresis [Recovered/Resolved with Sequelae]
  - Hypertensive crisis [Unknown]
  - Hypoaesthesia [Recovered/Resolved with Sequelae]
  - Arteriosclerosis [Recovered/Resolved with Sequelae]

NARRATIVE: CASE EVENT DATE: 201708
